FAERS Safety Report 11848541 (Version 3)
Quarter: 2018Q4

REPORT INFORMATION
  Report Type: Spontaneous
  Country: CA (occurrence: CA)
  Receive Date: 20151218
  Receipt Date: 20181129
  Transmission Date: 20190204
  Serious: Yes (Hospitalization, Other)
  Sender: FDA-Public Use
  Company Number: CA-009507513-1512CAN006728

PATIENT
  Age: 78 Year
  Sex: Female

DRUGS (15)
  1. DURAGESIC [Interacting]
     Active Substance: FENTANYL
     Indication: PAIN
     Dosage: DOSE 50 MC/H, ONE PATCH APPLIED EVERY 72 HOURS (STRENGTH: 50MC/H)
     Route: 061
  2. BETAMETHASONE. [Concomitant]
     Active Substance: BETAMETHASONE
  3. REMERON [Suspect]
     Active Substance: MIRTAZAPINE
     Indication: INSOMNIA
     Dosage: 3.75 MG, QD (ONCE DAILY AT BEDTIME)
     Route: 048
     Dates: start: 20150305, end: 20150306
  4. ZOPICLONE [Concomitant]
     Active Substance: ZOPICLONE
     Dosage: UNK
  5. SENOKOT [Concomitant]
     Active Substance: SENNOSIDES
     Dosage: UNK
  6. ACETAMINOPHEN. [Concomitant]
     Active Substance: ACETAMINOPHEN
  7. VENTOLIN [Concomitant]
     Active Substance: ALBUTEROL SULFATE
     Dosage: UNK
  8. FUROSEMIDE. [Concomitant]
     Active Substance: FUROSEMIDE
     Dosage: UNK
  9. VITAMIN D [Concomitant]
     Active Substance: CHOLECALCIFEROL
     Dosage: UNK
  10. REMERON [Interacting]
     Active Substance: MIRTAZAPINE
     Indication: ANXIETY
  11. ADVAIR HFA [Concomitant]
     Active Substance: FLUTICASONE PROPIONATE\SALMETEROL XINAFOATE
  12. BENADRYL [Concomitant]
     Active Substance: DIPHENHYDRAMINE HYDROCHLORIDE
  13. LAX A DAY [Concomitant]
     Dosage: UNK
  14. PANTOPRAZOLE [Concomitant]
     Active Substance: PANTOPRAZOLE
     Dosage: UNK
  15. PREDNISONE. [Concomitant]
     Active Substance: PREDNISONE
     Dosage: UNK

REACTIONS (3)
  - Hyperhidrosis [Unknown]
  - Drug interaction [Unknown]
  - Serotonin syndrome [Unknown]

NARRATIVE: CASE EVENT DATE: 20150306
